FAERS Safety Report 13844140 (Version 1)
Quarter: 2017Q3

REPORT INFORMATION
  Report Type: Spontaneous
  Country: US (occurrence: US)
  Receive Date: 20170808
  Receipt Date: 20170808
  Transmission Date: 20171127
  Serious: Yes (Other)
  Sender: FDA-Public Use
  Company Number: US-ELI_LILLY_AND_COMPANY-US201707012899

PATIENT
  Sex: Female

DRUGS (9)
  1. COENZYME Q10 [Concomitant]
     Active Substance: UBIDECARENONE
     Indication: CARDIAC DISORDER
     Dosage: 200 MG, UNKNOWN
  2. LEXAPRO [Concomitant]
     Active Substance: ESCITALOPRAM OXALATE
     Indication: DEPRESSION
     Dosage: 10 MG, UNKNOWN
  3. HUMALOG [Suspect]
     Active Substance: INSULIN LISPRO
     Indication: PRODUCT USED FOR UNKNOWN INDICATION
     Dosage: UNK UNK, PRN
     Route: 065
     Dates: start: 2017
  4. LISINOPRIL. [Concomitant]
     Active Substance: LISINOPRIL
     Indication: CARDIAC DISORDER
  5. SPIRONOLACTONE. [Concomitant]
     Active Substance: SPIRONOLACTONE
     Indication: PRODUCT USED FOR UNKNOWN INDICATION
     Dosage: 50 MG, UNKNOWN
  6. VITAMIN B12 [Concomitant]
     Active Substance: CYANOCOBALAMIN
     Indication: VITAMIN B12 DEFICIENCY
     Dosage: 1 ML, UNKNOWN
  7. LISINOPRIL. [Concomitant]
     Active Substance: LISINOPRIL
     Indication: BLOOD PRESSURE ABNORMAL
     Dosage: 40 MG, UNKNOWN
  8. WELLBUTRIN [Concomitant]
     Active Substance: BUPROPION HYDROCHLORIDE
     Indication: DEPRESSION
     Dosage: 300 MG, UNKNOWN
  9. ATENOLOL. [Concomitant]
     Active Substance: ATENOLOL
     Indication: CARDIAC DISORDER
     Dosage: 50 MG, UNKNOWN

REACTIONS (2)
  - Blood glucose decreased [Recovering/Resolving]
  - Blood glucose increased [Recovered/Resolved]
